FAERS Safety Report 6882562-8 (Version None)
Quarter: 2010Q3

REPORT INFORMATION
  Report Type: 
  Country: None (occurrence: None)
  Receive Date: 20100729
  Receipt Date: 20100726
  Transmission Date: 20110219
  Serious: Yes (Death, Hospitalization, Other)
  Sender: FDA-Public Use
  Company Number: ZA-JNJFOC-20100706731

PATIENT
  Sex: Female
  Weight: 62 kg

DRUGS (3)
  1. DURAGESIC-100 [Suspect]
     Indication: INTERVERTEBRAL DISC PROTRUSION
     Route: 062
  2. ANALGESICS [Concomitant]
     Indication: INTERVERTEBRAL DISC PROTRUSION
     Route: 065
  3. CITALOPRAM HYDROBROMIDE [Concomitant]
     Indication: DEPRESSION
     Route: 065

REACTIONS (2)
  - ANALGESIC DRUG LEVEL INCREASED [None]
  - PNEUMONIA [None]
